FAERS Safety Report 16327520 (Version 2)
Quarter: 2019Q2

REPORT INFORMATION
  Report Type: Spontaneous
  Country: GB (occurrence: GB)
  Receive Date: 20190517
  Receipt Date: 20190530
  Transmission Date: 20190711
  Serious: Yes (Other)
  Sender: FDA-Public Use
  Company Number: GB-ASCEND THERAPEUTICS-2067136

PATIENT
  Age: 67 Year
  Sex: Male

DRUGS (2)
  1. CYPROTERONE ACETATE FOR LONG-STANDING HORMONE REPLACEMENT THERAPY [Suspect]
     Active Substance: CYPROTERONE ACETATE
  2. ESTROGEL [Suspect]
     Active Substance: ESTRADIOL
     Indication: HORMONE REPLACEMENT THERAPY

REACTIONS (2)
  - Meningioma [Recovered/Resolved]
  - Product use in unapproved indication [Recovered/Resolved]
